FAERS Safety Report 5443508-2 (Version None)
Quarter: 2007Q3

REPORT INFORMATION
  Report Type: 
  Country: None (occurrence: None)
  Receive Date: 20070905
  Receipt Date: 20070827
  Transmission Date: 20080115
  Serious: Yes (Other)
  Sender: FDA-Public Use
  Company Number: US-ELI_LILLY_AND_COMPANY-US200708006177

PATIENT
  Age: 70 Year
  Sex: Female
  Weight: 111.11 kg

DRUGS (4)
  1. BYETTA [Suspect]
     Indication: TYPE 2 DIABETES MELLITUS
     Dosage: 10 UG, UNKNOWN
     Route: 065
  2. ASPIRIN [Concomitant]
     Dosage: UNK, UNKNOWN
     Route: 065
  3. GLYBURIDE [Concomitant]
     Dosage: UNK, UNKNOWN
     Route: 065
  4. DETROL [Concomitant]
     Dosage: UNK, UNKNOWN
     Route: 065

REACTIONS (2)
  - CEREBROVASCULAR ACCIDENT [None]
  - WEIGHT DECREASED [None]
